FAERS Safety Report 8607044-4 (Version None)
Quarter: 2012Q3

REPORT INFORMATION
  Report Type: 
  Country: None (occurrence: None)
  Receive Date: 20120821
  Receipt Date: 20120816
  Transmission Date: 20120928
  Serious: Yes (Other)
  Sender: FDA-Public Use
  Company Number: US-AMGEN-USASP2012052030

PATIENT
  Age: 80 Year
  Sex: Female

DRUGS (9)
  1. PROLIA [Suspect]
     Indication: OSTEOPOROSIS POSTMENOPAUSAL
     Dates: start: 20111122
  2. NEXIUM [Concomitant]
     Dosage: UNK
  3. TYLENOL ARTHRITIS [Concomitant]
     Dosage: 2 UNK, UNK
  4. MORPHINE [Concomitant]
  5. GLYCOLAX [Concomitant]
  6. COUMADIN [Concomitant]
     Dosage: UNK
  7. CALCIUM [Concomitant]
  8. VITAMIN D [Concomitant]
  9. MOBIC [Concomitant]
     Dosage: UNK

REACTIONS (3)
  - WOUND COMPLICATION [None]
  - SKIN ULCER [None]
  - IMPAIRED HEALING [None]
